FAERS Safety Report 10284454 (Version 1)
Quarter: 2014Q3

REPORT INFORMATION
  Report Type: Spontaneous
  Country: US (occurrence: None)
  Receive Date: 20140703
  Receipt Date: 20140703
  Transmission Date: 20150326
  Serious: Yes (Hospitalization)
  Sender: FDA-Public Use
  Company Number: UNT-2014-001820

PATIENT
  Age: 36 Year
  Sex: Female
  Weight: 63.5 kg

DRUGS (4)
  1. COUMADIN /00014802/ (WARFARIN SODIUM) [Concomitant]
  2. ADCIRCA [Concomitant]
     Active Substance: TADALAFIL
  3. TRACLEER /01587701/ (BOSENTAN) [Concomitant]
  4. REMODULIN [Suspect]
     Active Substance: TREPROSTINIL
     Indication: PULMONARY ARTERIAL HYPERTENSION
     Route: 041
     Dates: start: 20140227

REACTIONS (2)
  - Device dislocation [None]
  - Drug dose omission [None]
